FAERS Safety Report 7680543-8 (Version None)
Quarter: 2011Q3

REPORT INFORMATION
  Report Type: 
  Country: None (occurrence: None)
  Receive Date: 20110812
  Receipt Date: 20110810
  Transmission Date: 20111222
  Serious: Yes (Other)
  Sender: FDA-Public Use
  Company Number: CN-PFIZER INC-2011174233

PATIENT
  Age: 92 Year
  Sex: Male

DRUGS (1)
  1. CEFOPERAZONE SODIUM [Suspect]
     Indication: LUNG INFECTION
     Dosage: 1 G, 2X/DAY
     Route: 041
     Dates: start: 20041229, end: 20050105

REACTIONS (1)
  - COAGULOPATHY [None]
